FAERS Safety Report 4682749-9 (Version None)
Quarter: 2005Q2

REPORT INFORMATION
  Report Type: 
  Country: None (occurrence: None)
  Receive Date: 20050602
  Receipt Date: 20050426
  Transmission Date: 20051028
  Serious: No
  Sender: FDA-Public Use
  Company Number: USA050495924

PATIENT
  Age: 66 Year
  Sex: Female

DRUGS (9)
  1. CYMBALTA [Suspect]
     Indication: DEPRESSION
     Dosage: 60 MG/1 IN THE MORNING
     Dates: start: 20050401
  2. HUMALOG [Suspect]
     Indication: DIABETES MELLITUS
  3. INSULIN [Concomitant]
  4. ZESTRIL [Concomitant]
  5. SYNTHROID [Concomitant]
  6. PREVACID [Concomitant]
  7. CLONAZEPAM [Concomitant]
  8. NAPROXEN SODIUM [Concomitant]
  9. REMERON (MIRTAZAPINE ORIFARM) [Concomitant]

REACTIONS (8)
  - ANOREXIA [None]
  - BLOOD GLUCOSE DECREASED [None]
  - BLOOD GLUCOSE FLUCTUATION [None]
  - BLOOD GLUCOSE INCREASED [None]
  - CONSTIPATION [None]
  - DRY MOUTH [None]
  - SOMNOLENCE [None]
  - WEIGHT DECREASED [None]
